FAERS Safety Report 8784545 (Version 1)
Quarter: 2012Q4

REPORT INFORMATION
  Report Type: Spontaneous
  Country: US (occurrence: None)
  Receive Date: 20120907
  Receipt Date: 20120907
  Transmission Date: 20130627
  Serious: Yes (Life-Threatening, Hospitalization)
  Sender: FDA-Public Use
  Company Number: None

PATIENT
  Age: 70 Year
  Sex: Female
  Weight: 108 kg

DRUGS (1)
  1. PIPERACILLIN/TAZOBACTAM STRAGEN [Suspect]
     Indication: CELLULITIS
     Route: 042
     Dates: start: 20120903, end: 20120903

REACTIONS (3)
  - Apnoea [None]
  - Cardiac arrest [None]
  - Rash [None]
